FAERS Safety Report 6872782-0 (Version None)
Quarter: 2010Q3

REPORT INFORMATION
  Report Type: 
  Country: None (occurrence: None)
  Receive Date: 20100723
  Receipt Date: 20081020
  Transmission Date: 20110219
  Serious: No
  Sender: FDA-Public Use
  Company Number: US-PFIZER INC-2008088436

PATIENT
  Age: 50 Year
  Sex: Female

DRUGS (3)
  1. CHANTIX [Suspect]
  2. CELEBREX [Suspect]
  3. MOBIC [Suspect]

REACTIONS (2)
  - MENORRHAGIA [None]
  - MENSTRUAL DISORDER [None]
